FAERS Safety Report 10151852 (Version 1)
Quarter: 2014Q2

REPORT INFORMATION
  Report Type: Spontaneous
  Country: US (occurrence: None)
  Receive Date: 20140501
  Receipt Date: 20140501
  Transmission Date: 20141212
  Serious: Yes (Hospitalization)
  Sender: FDA-Public Use
  Company Number: HA14-140-AE

PATIENT
  Age: 51 Year
  Sex: Female
  Weight: 61.24 kg

DRUGS (1)
  1. NAPROXEN TABLETS, USP 500 MG (AMNEAL) [Suspect]
     Indication: PAIN
     Dosage: 1 TABLET A DAY, ORAL
     Route: 048
     Dates: start: 20140318, end: 20140318

REACTIONS (6)
  - Haemorrhage [None]
  - Diarrhoea [None]
  - Haematochezia [None]
  - Large intestinal ulcer [None]
  - Abdominal pain upper [None]
  - Gait disturbance [None]
